FAERS Safety Report 25801741 (Version 1)
Quarter: 2025Q3

REPORT INFORMATION
  Report Type: Spontaneous
  Country: US (occurrence: US)
  Receive Date: 20250915
  Receipt Date: 20250915
  Transmission Date: 20251021
  Serious: No
  Sender: COSETTE PHARMACEUTICALS INC
  Company Number: US-COSETTE-CP2025US000883

PATIENT
  Age: 66 Year
  Sex: Male

DRUGS (1)
  1. VYLEESI [Suspect]
     Active Substance: BREMELANOTIDE ACETATE
     Indication: Erectile dysfunction
     Route: 058
     Dates: start: 20250818, end: 20250819

REACTIONS (7)
  - Injection site rash [Unknown]
  - Vomiting [Unknown]
  - Flushing [Unknown]
  - Headache [Unknown]
  - Blood pressure increased [Unknown]
  - Heart rate decreased [Unknown]
  - Off label use [Unknown]

NARRATIVE: CASE EVENT DATE: 20250801
